FAERS Safety Report 16228471 (Version 1)
Quarter: 2019Q2

REPORT INFORMATION
  Report Type: Spontaneous
  Country: US (occurrence: US)
  Receive Date: 20190423
  Receipt Date: 20190423
  Transmission Date: 20190711
  Serious: No
  Sender: FDA-Public Use
  Company Number: US-PFIZER INC-2019168945

PATIENT
  Age: 84 Year
  Sex: Female
  Weight: 105.23 kg

DRUGS (2)
  1. LYRICA [Suspect]
     Active Substance: PREGABALIN
     Dosage: 250 MG, DAILY[TWO CAPSULES IN THE MORNING, ONE CAPSULE IN THE AFTERNOON, AND TWO CAPSULES AT NIGHT]
  2. LYRICA [Suspect]
     Active Substance: PREGABALIN
     Indication: FIBROMYALGIA
     Dosage: 50 MG, 1X/DAY (AT NIGHT)
     Route: 048

REACTIONS (1)
  - Therapeutic product effect delayed [Unknown]
